FAERS Safety Report 8662935 (Version 2)
Quarter: 2012Q4

REPORT INFORMATION
  Report Type: 
  Country: US (occurrence: US)
  Receive Date: 20120712
  Receipt Date: 20120905
  Transmission Date: 20130627
  Serious: No
  Sender: FDA-Public Use
  Company Number: US-009507513-1207USA000868

PATIENT

DRUGS (4)
  1. NASONEX [Suspect]
     Indication: HYPERSENSITIVITY
     Dosage: 50 Microgram, bid
     Route: 055
     Dates: start: 20120622
  2. NEXIUM [Concomitant]
  3. ZOLPIDEM TARTRATE [Concomitant]
  4. SIMVASTATIN [Concomitant]

REACTIONS (2)
  - Drug dose omission [Unknown]
  - Product quality issue [Unknown]
